FAERS Safety Report 5690095-X (Version None)
Quarter: 2008Q1

REPORT INFORMATION
  Report Type: 
  Country: None (occurrence: None)
  Receive Date: 20080331
  Receipt Date: 20080331
  Transmission Date: 20080703
  Serious: Yes (Hospitalization, Other)
  Sender: FDA-Public Use
  Company Number: None

PATIENT
  Sex: Male
  Weight: 77.1115 kg

DRUGS (1)
  1. VYTORIN [Suspect]
     Indication: LOW DENSITY LIPOPROTEIN INCREASED
     Dosage: 1 DAILY PO
     Route: 048
     Dates: start: 20070228, end: 20080330

REACTIONS (3)
  - FALL [None]
  - STAPHYLOCOCCAL INFECTION [None]
  - TENDONITIS [None]
